FAERS Safety Report 8214557-6 (Version None)
Quarter: 2012Q1

REPORT INFORMATION
  Report Type: 
  Country: None (occurrence: None)
  Receive Date: 20120228
  Receipt Date: 20110214
  Transmission Date: 20120608
  Serious: Yes (Death)
  Sender: FDA-Public Use
  Company Number: RB-15073-2010

PATIENT
  Sex: Male
  Weight: 75.7507 kg

DRUGS (6)
  1. SUBOXONE [Suspect]
     Indication: DRUG DEPENDENCE
     Dosage: (8 MG BID SUBLINGUAL), (12 MG QD SUBLINGUAL), (8 MG BID SUBLINGUAL), (16 MG BID UNKNOWN)
     Route: 060
     Dates: end: 20100324
  2. SUBOXONE [Suspect]
     Indication: DRUG DEPENDENCE
     Dosage: (8 MG BID SUBLINGUAL), (12 MG QD SUBLINGUAL), (8 MG BID SUBLINGUAL), (16 MG BID UNKNOWN)
     Route: 060
     Dates: start: 20100706, end: 20100801
  3. SUBOXONE [Suspect]
     Indication: DRUG DEPENDENCE
     Dosage: (8 MG BID SUBLINGUAL), (12 MG QD SUBLINGUAL), (8 MG BID SUBLINGUAL), (16 MG BID UNKNOWN)
     Route: 060
     Dates: start: 20100806
  4. SUBOXONE [Suspect]
     Indication: DRUG DEPENDENCE
     Dosage: (8 MG BID SUBLINGUAL), (12 MG QD SUBLINGUAL), (8 MG BID SUBLINGUAL), (16 MG BID UNKNOWN)
     Route: 060
     Dates: start: 20100325, end: 20100705
  5. XANAX [Suspect]
     Indication: ANXIETY
     Dosage: (2 MG TID UNKNOWN)
     Dates: start: 20100806
  6. ADDERALL 5 [Concomitant]

REACTIONS (5)
  - POISONING [None]
  - LOSS OF CONSCIOUSNESS [None]
  - SNORING [None]
  - OVERDOSE [None]
  - UNRESPONSIVE TO STIMULI [None]
